FAERS Safety Report 18360436 (Version 1)
Quarter: 2020Q4

REPORT INFORMATION
  Report Type: Spontaneous
  Country: US (occurrence: US)
  Receive Date: 20201008
  Receipt Date: 20201008
  Transmission Date: 20210114
  Serious: No
  Sender: FDA-Public Use
  Company Number: None

PATIENT
  Sex: Female

DRUGS (7)
  1. MAVYRET [Suspect]
     Active Substance: GLECAPREVIR\PIBRENTASVIR
  2. AMLODIPINE 10MG TABLET DAILY [Concomitant]
  3. ATON/ASTATIN 20MG TABLET DAILY [Concomitant]
  4. PANTOPRAZOLE 40MG TABLET DAILY [Concomitant]
  5. RAMIPN^L 10MG CAPSULE DAILY [Concomitant]
  6. ASPIRIN 81 MG TABLET DAILY [Concomitant]
  7. MELOXICAM 15MG TABLET DAILY [Concomitant]

REACTIONS (1)
  - Pruritus [None]
